FAERS Safety Report 15346315 (Version 1)
Quarter: 2018Q3

REPORT INFORMATION
  Report Type: Spontaneous
  Country: US (occurrence: US)
  Receive Date: 20180828
  Receipt Date: 20180828
  Transmission Date: 20181010
  Serious: Yes (Life-Threatening, Disabling)
  Sender: FDA-Public Use
  Company Number: None

PATIENT
  Age: 35 Year
  Sex: Male
  Weight: 74.84 kg

DRUGS (1)
  1. KRATOM [Suspect]
     Active Substance: MITRAGYNINE\HERBALS
     Indication: PAIN
     Route: 048
     Dates: start: 20160721, end: 20180729

REACTIONS (7)
  - Withdrawal syndrome [None]
  - Drug abuse [None]
  - Apparent life threatening event [None]
  - Weight decreased [None]
  - Drug dependence [None]
  - Yellow skin [None]
  - Generalised tonic-clonic seizure [None]

NARRATIVE: CASE EVENT DATE: 20180510
